FAERS Safety Report 15334154 (Version 1)
Quarter: 2018Q3

REPORT INFORMATION
  Report Type: Spontaneous
  Country: US (occurrence: US)
  Receive Date: 20180825
  Receipt Date: 20180825
  Transmission Date: 20181010
  Serious: Yes (Other)
  Sender: FDA-Public Use
  Company Number: None

PATIENT
  Age: 78 Year
  Sex: Male
  Weight: 108.9 kg

DRUGS (13)
  1. FINASTERIDE. [Concomitant]
     Active Substance: FINASTERIDE
  2. XARELTO [Concomitant]
     Active Substance: RIVAROXABAN
  3. AMLODIPINE [Concomitant]
     Active Substance: AMLODIPINE BESYLATE
  4. MAGNESIUM [Concomitant]
     Active Substance: MAGNESIUM
  5. LOSARTAN. [Concomitant]
     Active Substance: LOSARTAN
  6. TAMSULOSIN [Concomitant]
     Active Substance: TAMSULOSIN
  7. ZYRTEC [Concomitant]
     Active Substance: CETIRIZINE HYDROCHLORIDE
  8. CHLORTHIADONE [Concomitant]
  9. ATORVASTATIN 40 MG, ONCE PER DAY [Suspect]
     Active Substance: ATORVASTATIN
     Indication: MYOCARDIAL INFARCTION
     Dosage: ?          QUANTITY:1 TABLET(S);?
     Route: 048
     Dates: start: 20180426
  10. CARVEDILOL. [Concomitant]
     Active Substance: CARVEDILOL
  11. PLAVIX [Concomitant]
     Active Substance: CLOPIDOGREL BISULFATE
  12. POTASSIUM [Concomitant]
     Active Substance: POTASSIUM
  13. ATORVASTATIN [Concomitant]
     Active Substance: ATORVASTATIN

REACTIONS (6)
  - Amnesia [None]
  - Hypoacusis [None]
  - Visual impairment [None]
  - Balance disorder [None]
  - Muscular weakness [None]
  - Nervous system disorder [None]

NARRATIVE: CASE EVENT DATE: 20180815
